FAERS Safety Report 10044413 (Version 1)
Quarter: 2014Q1

REPORT INFORMATION
  Report Type: Spontaneous
  Country: US (occurrence: US)
  Receive Date: 20140328
  Receipt Date: 20140328
  Transmission Date: 20141002
  Serious: Yes (Disabling)
  Sender: FDA-Public Use
  Company Number: US-GE HEALTHCARE MEDICAL DIAGNOSTICS-OSCN-PR-1004S-0098

PATIENT
  Sex: Female

DRUGS (5)
  1. GADOLINIUM (UNSPECIFIED) [Suspect]
     Indication: NECK PAIN
     Route: 042
     Dates: start: 20061124, end: 20061124
  2. GADOLINIUM (UNSPECIFIED) [Suspect]
     Indication: INTERVERTEBRAL DISC DISORDER
     Route: 042
     Dates: start: 20061204, end: 20061204
  3. MAGNEVIST [Suspect]
     Indication: OSTEOMYELITIS
     Route: 042
     Dates: start: 20061122, end: 20061122
  4. MAGNEVIST [Suspect]
     Indication: NECK PAIN
     Dates: start: 20061124, end: 20061124
  5. MAGNEVIST [Suspect]
     Indication: INFECTION
     Dates: start: 20061204, end: 20061204

REACTIONS (1)
  - Nephrogenic systemic fibrosis [Not Recovered/Not Resolved]
